FAERS Safety Report 12294527 (Version 1)
Quarter: 2016Q2

REPORT INFORMATION
  Report Type: Spontaneous
  Country: JP (occurrence: JP)
  Receive Date: 20160422
  Receipt Date: 20160422
  Transmission Date: 20160815
  Serious: Yes (Hospitalization)
  Sender: FDA-Public Use
  Company Number: JP-ACCORD-039795

PATIENT
  Age: 68 Year
  Sex: Female

DRUGS (2)
  1. MITOMYCIN. [Suspect]
     Active Substance: MITOMYCIN
     Indication: MALIGNANT PERITONEAL NEOPLASM
     Dates: start: 201212
  2. IRINOTECAN [Concomitant]
     Active Substance: IRINOTECAN
     Indication: MALIGNANT PERITONEAL NEOPLASM
     Dates: start: 201212

REACTIONS (4)
  - Renal impairment [Unknown]
  - Pulmonary veno-occlusive disease [Recovering/Resolving]
  - Cardiac failure [Recovering/Resolving]
  - Haemangioma [Recovering/Resolving]
